FAERS Safety Report 9620965 (Version 1)
Quarter: 2013Q4

REPORT INFORMATION
  Report Type: Spontaneous
  Country: DE (occurrence: DE)
  Receive Date: 20131015
  Receipt Date: 20131015
  Transmission Date: 20140711
  Serious: Yes (Hospitalization)
  Sender: FDA-Public Use
  Company Number: DE-RANBAXY-2013RR-74076

PATIENT
  Age: 50 Year
  Sex: Male

DRUGS (6)
  1. AMLODIPINE [Suspect]
     Indication: HYPERTENSION
     Dosage: 5 MG, QD
     Route: 048
     Dates: start: 201101, end: 201211
  2. AMLODIPINE [Suspect]
     Indication: HYPERTENSION
     Dosage: 10 MG, QD
     Route: 048
     Dates: start: 201211, end: 201303
  3. METOPROLOL SUCCINAT STADA [Concomitant]
     Indication: HYPERTENSION
     Dosage: 95 MG, QD
     Route: 048
     Dates: start: 201110
  4. RAMIPRIL PLUS [Concomitant]
     Indication: HYPERTENSION
     Dosage: UNK
     Route: 048
     Dates: start: 201102
  5. EUTHYROX [Concomitant]
     Indication: HYPOTHYROIDISM
     Dosage: 175 MG, QD
     Route: 048
     Dates: start: 201201
  6. OMEP [Concomitant]
     Indication: GASTRITIS
     Dosage: UNK
     Route: 048

REACTIONS (4)
  - Abdominal pain [Recovered/Resolved]
  - Chest pain [Recovered/Resolved]
  - Paraesthesia [Recovered/Resolved]
  - Ear discomfort [Recovered/Resolved]
